FAERS Safety Report 5247819-5 (Version None)
Quarter: 2007Q1

REPORT INFORMATION
  Report Type: 
  Country: None (occurrence: None)
  Receive Date: 20070227
  Receipt Date: 20070227
  Transmission Date: 20070707
  Serious: Yes (Hospitalization)
  Sender: FDA-Public Use
  Company Number: None

PATIENT
  Sex: Male
  Weight: 49.4421 kg

DRUGS (2)
  1. ADDERALL 10 [Suspect]
     Indication: PSYCHOMOTOR HYPERACTIVITY
     Dosage: 40MG QAM AND 10 MG Q4PM
     Route: 048
  2. RISPERDAL [Suspect]
     Dosage: 0.25MG PO BID, 1 MG PO Q4PM
     Route: 048

REACTIONS (1)
  - PRIAPISM [None]
